FAERS Safety Report 9504355 (Version 1)
Quarter: 2013Q3

REPORT INFORMATION
  Report Type: Spontaneous
  Country: PT (occurrence: PT)
  Receive Date: 20130906
  Receipt Date: 20130906
  Transmission Date: 20140515
  Serious: Yes (Hospitalization, Other)
  Sender: FDA-Public Use
  Company Number: PT-BAYER-2013-107282

PATIENT
  Age: 57 Year
  Sex: Male

DRUGS (11)
  1. ACETYLSALICYLIC ACID (} 100 MG) [Suspect]
     Dosage: 300 MG/DAY
  2. VALPROIC ACID [Suspect]
  3. VALPROIC ACID [Suspect]
     Dosage: 1000 MG/DAY
  4. VALPROIC ACID [Suspect]
     Dosage: 1500 MG/DAY
  5. SIMVASTATIN [Concomitant]
  6. AMOXICILLIN W/CLAVULANIC ACID [Concomitant]
     Indication: URINARY TRACT INFECTION
  7. CAPTOPRIL [Concomitant]
     Dosage: 25 MG, BID
  8. METFORMIN [Concomitant]
     Dosage: 1000 MG, BID
  9. LEVETIRACETAM [Concomitant]
     Dosage: 500 MG, BID
  10. L-CARNITINE [Concomitant]
     Dosage: DAILY DOSE 2.5 MG/KG
  11. LACTULOSE [Concomitant]

REACTIONS (5)
  - Hyperammonaemic encephalopathy [Recovered/Resolved]
  - Toxic encephalopathy [Recovered/Resolved]
  - Hyperammonaemia [Recovered/Resolved]
  - Partial seizures with secondary generalisation [None]
  - Urinary tract infection [None]
